FAERS Safety Report 15657994 (Version 1)
Quarter: 2018Q4

REPORT INFORMATION
  Report Type: Report from Study
  Country: US (occurrence: US)
  Receive Date: 20181126
  Receipt Date: 20181126
  Transmission Date: 20190205
  Serious: Yes (Other)
  Sender: FDA-Public Use
  Company Number: US-JNJFOC-20181124663

PATIENT

DRUGS (1)
  1. IBRUTINIB [Suspect]
     Active Substance: IBRUTINIB
     Indication: MANTLE CELL LYMPHOMA
     Route: 048

REACTIONS (7)
  - Hypertension [Unknown]
  - Atrial fibrillation [Unknown]
  - Anaemia [Unknown]
  - Hepatotoxicity [Unknown]
  - Cerebrovascular accident [Unknown]
  - Infection [Unknown]
  - Renal failure [Unknown]
